FAERS Safety Report 17705677 (Version 1)
Quarter: 2020Q2

REPORT INFORMATION
  Report Type: Spontaneous
  Country: FR (occurrence: FR)
  Receive Date: 20200424
  Receipt Date: 20200424
  Transmission Date: 20200714
  Serious: Yes (Hospitalization)
  Sender: FDA-Public Use
  Company Number: FR-PFIZER INC-2020161935

PATIENT
  Age: 11 Year
  Sex: Male

DRUGS (1)
  1. XALKORI [Suspect]
     Active Substance: CRIZOTINIB
     Indication: ANAPLASTIC LARGE-CELL LYMPHOMA
     Dosage: 400 MG, 1X/DAY
     Route: 048
     Dates: start: 20200221, end: 20200311

REACTIONS (4)
  - Chest pain [Recovered/Resolved]
  - Product use in unapproved indication [Unknown]
  - Oesophagitis [Recovered/Resolved]
  - Off label use [Unknown]

NARRATIVE: CASE EVENT DATE: 20200305
